FAERS Safety Report 24149871 (Version 3)
Quarter: 2025Q1

REPORT INFORMATION
  Report Type: Other
  Country: US (occurrence: US)
  Receive Date: 20240730
  Receipt Date: 20250217
  Transmission Date: 20250409
  Serious: No
  Sender: TRAVERE THERAPEUTICS
  Company Number: US-TRAVERE-2024TVT00594

PATIENT
  Age: 50 Year
  Sex: Female

DRUGS (3)
  1. FILSPARI [Suspect]
     Active Substance: SPARSENTAN
     Indication: Haematuria
     Route: 048
     Dates: start: 202404, end: 202411
  2. FILSPARI [Suspect]
     Active Substance: SPARSENTAN
     Indication: Chronic kidney disease
  3. FILSPARI [Suspect]
     Active Substance: SPARSENTAN
     Indication: IgA nephropathy

REACTIONS (7)
  - Migraine [Unknown]
  - Proteinuria [Unknown]
  - Haemoglobin decreased [Unknown]
  - Hypertension [Unknown]
  - Drug ineffective [Unknown]
  - Blood creatine increased [Unknown]
  - Renal impairment [Unknown]
